FAERS Safety Report 4786831-7 (Version None)
Quarter: 2005Q4

REPORT INFORMATION
  Report Type: 
  Country: None (occurrence: None)
  Receive Date: 20051003
  Receipt Date: 20051003
  Transmission Date: 20060501
  Serious: Yes (Hospitalization)
  Sender: FDA-Public Use
  Company Number: None

PATIENT
  Age: 70 Year
  Sex: Female
  Weight: 86.637 kg

DRUGS (7)
  1. VIDAZA [Suspect]
     Indication: MYELODYSPLASTIC SYNDROME
     Dosage: 140 SQ  CYCLE #4 DAILY
     Route: 058
     Dates: start: 20050418, end: 20050422
  2. VIDAZA [Suspect]
     Indication: SIDEROBLASTIC ANAEMIA
     Dosage: 140 SQ  CYCLE #4 DAILY
     Route: 058
     Dates: start: 20050418, end: 20050422
  3. PROTONIX [Concomitant]
  4. AMBIEN [Concomitant]
  5. TOPROL-XL [Concomitant]
  6. HYDROCHLOROTHIAZIDE [Concomitant]
  7. .. [Concomitant]

REACTIONS (7)
  - INJECTION SITE ERYTHEMA [None]
  - INJECTION SITE OEDEMA [None]
  - INJECTION SITE PRURITUS [None]
  - INJECTION SITE WARMTH [None]
  - LETHARGY [None]
  - MALAISE [None]
  - PYREXIA [None]
